FAERS Safety Report 4372066-9 (Version None)
Quarter: 2004Q2

REPORT INFORMATION
  Report Type: 
  Country: None (occurrence: None)
  Receive Date: 20040603
  Receipt Date: 20040603
  Transmission Date: 20050107
  Serious: Yes (Life-Threatening, Hospitalization)
  Sender: FDA-Public Use
  Company Number: None

PATIENT
  Age: 16 Year
  Sex: Female
  Weight: 68.0396 kg

DRUGS (1)
  1. BACTRIM [Suspect]
     Indication: ACNE
     Dosage: 2 TIMES DAILY
     Dates: start: 20040401, end: 20040501

REACTIONS (1)
  - STEVENS-JOHNSON SYNDROME [None]
